FAERS Safety Report 7919285-X (Version None)
Quarter: 2011Q4

REPORT INFORMATION
  Report Type: 
  Country: None (occurrence: None)
  Receive Date: 20111115
  Receipt Date: 20111115
  Transmission Date: 20120403
  Serious: Yes (Hospitalization)
  Sender: FDA-Public Use
  Company Number: None

PATIENT
  Sex: Female
  Weight: 45.5 kg

DRUGS (1)
  1. MESTINON [Suspect]
     Indication: MYASTHENIA GRAVIS
     Dosage: 180MG THREE TIME DAILY ORAL
     Route: 048

REACTIONS (2)
  - MYASTHENIA GRAVIS [None]
  - MEDICATION RESIDUE [None]
